FAERS Safety Report 17485226 (Version 2)
Quarter: 2020Q1

REPORT INFORMATION
  Report Type: Report from Study
  Country: IT (occurrence: IT)
  Receive Date: 20200302
  Receipt Date: 20200303
  Transmission Date: 20200409
  Serious: No
  Sender: FDA-Public Use
  Company Number: IT-BIOGEN-2020BI00843979

PATIENT
  Age: 33 Year
  Sex: Female

DRUGS (2)
  1. TYSABRI [Suspect]
     Active Substance: NATALIZUMAB
     Indication: RELAPSING-REMITTING MULTIPLE SCLEROSIS
     Route: 042
     Dates: start: 20180301
  2. XARENEL [Concomitant]
     Indication: VITAMIN D DEFICIENCY
     Route: 065

REACTIONS (1)
  - Adenoma benign [Unknown]

NARRATIVE: CASE EVENT DATE: 20191212
